FAERS Safety Report 17551372 (Version 1)
Quarter: 2020Q1

REPORT INFORMATION
  Report Type: Spontaneous
  Country: US (occurrence: US)
  Receive Date: 20200317
  Receipt Date: 20200317
  Transmission Date: 20200409
  Serious: Yes (Other)
  Sender: FDA-Public Use
  Company Number: None

PATIENT
  Age: 81 Year
  Sex: Male
  Weight: 55.67 kg

DRUGS (11)
  1. FLONASE ALLERGY RELIEF 50 MCG/ACT [Concomitant]
  2. CITRACAL PLUS [Concomitant]
     Active Substance: CALCIUM\MAGNESIUM\VITAMIN D\ZINC
  3. METAMUCIL [Concomitant]
     Active Substance: PLANTAGO SEED
  4. VITAMIN D3 1000 IU [Concomitant]
  5. ABIRATERONE. [Suspect]
     Active Substance: ABIRATERONE ACETATE
     Indication: PROSTATE CANCER
     Route: 048
     Dates: start: 20200220
  6. XGEVA 120 MG/1.7 ML [Concomitant]
  7. ASPIRIN 325 MG [Concomitant]
     Active Substance: ASPIRIN
  8. PRAVASTATIN 40 MG [Concomitant]
     Active Substance: PRAVASTATIN
  9. METOPROLOL SUCCINATE ER 50 MG [Concomitant]
     Active Substance: METOPROLOL SUCCINATE
  10. LATANOPROST 0.005% [Concomitant]
     Active Substance: LATANOPROST
  11. LUPRON DEPOT [Concomitant]
     Active Substance: LEUPROLIDE ACETATE

REACTIONS (1)
  - Prostatic specific antigen increased [None]

NARRATIVE: CASE EVENT DATE: 20200312
